FAERS Safety Report 10231119 (Version 1)
Quarter: 2014Q2

REPORT INFORMATION
  Report Type: Spontaneous
  Country: GB (occurrence: GB)
  Receive Date: 20140611
  Receipt Date: 20140611
  Transmission Date: 20141212
  Serious: Yes (Hospitalization)
  Sender: FDA-Public Use
  Company Number: GB-BRISTOL-MYERS SQUIBB COMPANY-20962742

PATIENT
  Sex: Female

DRUGS (1)
  1. APIXABAN [Suspect]

REACTIONS (1)
  - Skin lesion [Unknown]
